FAERS Safety Report 24175427 (Version 1)
Quarter: 2024Q3

REPORT INFORMATION
  Report Type: Report from Study
  Country: US (occurrence: US)
  Receive Date: 20240805
  Receipt Date: 20240805
  Transmission Date: 20241016
  Serious: Yes (Other)
  Sender: OTSUKA
  Company Number: US-OTSUKA-2024_014753

PATIENT
  Age: 77 Year
  Sex: Female
  Weight: 70.76 kg

DRUGS (5)
  1. TOLVAPTAN [Suspect]
     Active Substance: TOLVAPTAN
     Indication: Congenital cystic kidney disease
     Dosage: 45 MG, QD (EVERY MORNING)
     Route: 048
     Dates: start: 20240505, end: 202405
  2. TOLVAPTAN [Suspect]
     Active Substance: TOLVAPTAN
     Dosage: 15 MG, QD (8 H LATER)
     Route: 048
     Dates: start: 20240505, end: 202405
  3. THYROID [Concomitant]
     Active Substance: LEVOTHYROXINE\LIOTHYRONINE
     Indication: Product used for unknown indication
     Dosage: UNK
     Route: 065
  4. GOUT [Concomitant]
     Indication: Product used for unknown indication
     Dosage: UNK
     Route: 065
  5. CHOLESTEROL [Concomitant]
     Active Substance: CHOLESTEROL
     Indication: Product used for unknown indication
     Dosage: UNK
     Route: 065

REACTIONS (9)
  - Malaise [Unknown]
  - Nausea [Unknown]
  - Glomerular filtration rate decreased [Recovering/Resolving]
  - Fatigue [Unknown]
  - Headache [Unknown]
  - Fluid retention [Unknown]
  - Dyspepsia [Unknown]
  - Polydipsia [Unknown]
  - Thirst [Unknown]

NARRATIVE: CASE EVENT DATE: 20240517
